FAERS Safety Report 6107505-6 (Version None)
Quarter: 2009Q1

REPORT INFORMATION
  Report Type: 
  Country: None (occurrence: None)
  Receive Date: 20090302
  Receipt Date: 20080730
  Transmission Date: 20090719
  Serious: Yes (Hospitalization)
  Sender: FDA-Public Use
  Company Number: WAES 0808USA01299

PATIENT
  Age: 78 Year
  Sex: Male

DRUGS (1)
  1. PRINIVIL [Suspect]
     Dosage: PO
     Route: 048
     Dates: end: 20010911

REACTIONS (1)
  - HYPERKALAEMIA [None]
